FAERS Safety Report 5306910-5 (Version None)
Quarter: 2007Q2

REPORT INFORMATION
  Report Type: 
  Country: None (occurrence: None)
  Receive Date: 20070419
  Receipt Date: 20070405
  Transmission Date: 20071010
  Serious: No
  Sender: FDA-Public Use
  Company Number: 07-000763

PATIENT
  Sex: Female

DRUGS (1)
  1. FEMCON FE (NORETHINDRONE, ETHINYL ESTRADIOL) CHEWABLE, 35/400UG [Suspect]
     Dosage: 35/400 UG, QD, ORAL
     Route: 048

REACTIONS (1)
  - ANAPHYLACTIC SHOCK [None]
